FAERS Safety Report 4417400-6 (Version None)
Quarter: 2004Q3

REPORT INFORMATION
  Report Type: 
  Country: None (occurrence: None)
  Receive Date: 20040803
  Receipt Date: 20040721
  Transmission Date: 20050211
  Serious: Yes (Other)
  Sender: FDA-Public Use
  Company Number: 2004224694US

PATIENT
  Sex: Female

DRUGS (3)
  1. PROVERA [Suspect]
     Dosage: 10 MG, CYCLIC
     Dates: start: 19970801, end: 19981001
  2. PREMARIN [Suspect]
     Dosage: 1.25  CYCLIC
     Dates: start: 19970801, end: 19981001
  3. PREMPHASE (PREMARIN;CYCRIN 14/14) [Suspect]
     Dates: end: 20000901

REACTIONS (1)
  - BREAST CANCER FEMALE [None]
